FAERS Safety Report 9887079 (Version 1)
Quarter: 2014Q1

REPORT INFORMATION
  Report Type: Spontaneous
  Country: US (occurrence: US)
  Receive Date: 20140211
  Receipt Date: 20140211
  Transmission Date: 20141002
  Serious: No
  Sender: FDA-Public Use
  Company Number: US-BIOGENIDEC-2014BI011948

PATIENT
  Sex: Female

DRUGS (2)
  1. AVONEX [Suspect]
     Indication: MULTIPLE SCLEROSIS
     Route: 030
     Dates: start: 20120215, end: 20120901
  2. AVONEX [Suspect]
     Indication: MULTIPLE SCLEROSIS
     Route: 030
     Dates: start: 20121206, end: 20130201

REACTIONS (10)
  - Memory impairment [Recovered/Resolved]
  - Gait disturbance [Recovered/Resolved]
  - Multiple sclerosis [Recovered/Resolved]
  - Speech disorder [Recovered/Resolved]
  - Hypoaesthesia [Recovered/Resolved]
  - Fall [Recovered/Resolved]
  - Lower limb fracture [Recovered/Resolved]
  - Accident [Recovered/Resolved]
  - Pain [Recovered/Resolved]
  - Depression [Recovered/Resolved]
